FAERS Safety Report 8273193 (Version 5)
Quarter: 2020Q2

REPORT INFORMATION
  Report Type: Report from Study
  Country: JP (occurrence: JP)
  Receive Date: 20111202
  Receipt Date: 20200623
  Transmission Date: 20200714
  Serious: Yes (Hospitalization, Disabling, Other)
  Sender: FDA-Public Use
  Company Number: JP-CELGENEUS-087-21880-11112820

PATIENT
  Age: 54 Year
  Sex: Male

DRUGS (41)
  1. TAKEPRON [Concomitant]
     Active Substance: LANSOPRAZOLE
     Indication: PROPHYLAXIS
     Dosage: 15 MILLIGRAM
     Route: 048
     Dates: start: 200908, end: 20110615
  2. NEUFAN [Concomitant]
     Active Substance: ALLOPURINOL
     Indication: PROPHYLAXIS
     Dosage: 100 MILLIGRAM
     Route: 048
     Dates: start: 20110617, end: 20110818
  3. REVLIMID [Suspect]
     Active Substance: LENALIDOMIDE
     Route: 048
     Dates: start: 20110617, end: 20110707
  4. REVLIMID [Suspect]
     Active Substance: LENALIDOMIDE
     Route: 048
     Dates: start: 20110715, end: 20110804
  5. REVLIMID [Suspect]
     Active Substance: LENALIDOMIDE
     Route: 048
     Dates: start: 20110812, end: 20110817
  6. LENADEX [Suspect]
     Active Substance: DEXAMETHASONE ACETATE
     Dosage: 24 MILLIGRAM
     Route: 048
     Dates: start: 20110617, end: 20110620
  7. LENADEX [Suspect]
     Active Substance: DEXAMETHASONE ACETATE
     Dosage: 24 MILLIGRAM
     Route: 048
     Dates: start: 20110703, end: 20110706
  8. LENADEX [Suspect]
     Active Substance: DEXAMETHASONE ACETATE
     Dosage: 24 MILLIGRAM
     Route: 048
     Dates: start: 20110715, end: 20110718
  9. SOLITA-T3 [Concomitant]
     Active Substance: POTASSIUM CHLORIDE\SODIUM CHLORIDE\SODIUM LACTATE
     Indication: ILL-DEFINED DISORDER
     Dosage: 1500 MILLILITER
     Route: 041
     Dates: start: 20110728, end: 20110804
  10. BAYASPIRIN [Concomitant]
     Active Substance: ASPIRIN
     Dosage: 100 MILLIGRAM
     Route: 048
     Dates: start: 20110617, end: 20110818
  11. MEYLON [Concomitant]
     Active Substance: SODIUM BICARBONATE
     Indication: PROPHYLAXIS
     Dosage: 40 MILLILITER
     Route: 041
     Dates: start: 20110512, end: 20110519
  12. LACTEC [Concomitant]
     Active Substance: CALCIUM CHLORIDE ANHYDROUS\POTASSIUM CHLORIDE\SODIUM CHLORIDE\SODIUM LACTATE
     Indication: ILL-DEFINED DISORDER
     Dosage: 500 MILLILITER
     Route: 041
     Dates: start: 20110710, end: 20110710
  13. LENADEX [Suspect]
     Active Substance: DEXAMETHASONE ACETATE
     Dosage: 24 MILLIGRAM
     Route: 048
     Dates: start: 20110527, end: 20110530
  14. LENADEX [Suspect]
     Active Substance: DEXAMETHASONE ACETATE
     Dosage: 24 MILLIGRAM
     Route: 048
     Dates: start: 20110625, end: 20110628
  15. ITRIZOLE [Concomitant]
     Active Substance: ITRACONAZOLE
     Indication: PROPHYLAXIS
     Dosage: 50 MILLIGRAM
     Route: 048
     Dates: start: 200908, end: 20110615
  16. BACTRAMIN [Concomitant]
     Active Substance: SULFAMETHOXAZOLE\TRIMETHOPRIM
     Indication: PROPHYLAXIS
     Dosage: 1 TABLET
     Route: 048
     Dates: start: 200908, end: 20110615
  17. MAGMITT [Concomitant]
     Active Substance: MAGNESIUM OXIDE
     Indication: ILL-DEFINED DISORDER
     Dosage: 1980 MILLIGRAM
     Route: 048
     Dates: start: 200908, end: 20110615
  18. SOLITA-T NO.1 [Concomitant]
     Dosage: 1500 MILLILITER
     Route: 041
     Dates: start: 20110710, end: 20110719
  19. EPOGIN [Concomitant]
     Active Substance: ERYTHROPOIETIN
     Indication: ILL-DEFINED DISORDER
     Dosage: 12000 IU (INTERNATIONAL UNIT)
     Route: 058
     Dates: start: 20110714, end: 20110714
  20. REVLIMID [Suspect]
     Active Substance: LENALIDOMIDE
     Indication: PLASMA CELL MYELOMA
     Route: 048
     Dates: start: 20110519, end: 20110608
  21. LENADEX [Suspect]
     Active Substance: DEXAMETHASONE ACETATE
     Dosage: 24 MILLIGRAM
     Route: 048
     Dates: start: 20110812, end: 20110815
  22. ITRIZOLE [Concomitant]
     Active Substance: ITRACONAZOLE
     Dosage: 50 MILLIGRAM
     Route: 048
     Dates: start: 20110617, end: 20110818
  23. LAXOBERON [Concomitant]
     Active Substance: SODIUM PICOSULFATE
     Indication: ILL-DEFINED DISORDER
     Dosage: 15 DROPS
     Route: 048
     Dates: start: 20110716, end: 20110818
  24. LENADEX [Suspect]
     Active Substance: DEXAMETHASONE ACETATE
     Dosage: 24 MILLIGRAM
     Route: 048
     Dates: start: 20110723, end: 20110726
  25. LENADEX [Suspect]
     Active Substance: DEXAMETHASONE ACETATE
     Dosage: 24 MILLIGRAM
     Route: 048
     Dates: start: 20110731, end: 20110803
  26. BACTRAMIN [Concomitant]
     Active Substance: SULFAMETHOXAZOLE\TRIMETHOPRIM
     Dosage: 1 TABLET
     Route: 048
     Dates: start: 20110617, end: 20110818
  27. MOHRUS TAPE [Concomitant]
     Active Substance: KETOPROFEN
     Dosage: 20 MILLIGRAM
     Route: 062
     Dates: start: 20110617, end: 20110818
  28. SOLITA-T NO.1 [Concomitant]
     Dosage: 1500 MILLILITER
     Route: 041
     Dates: start: 20110630, end: 20110704
  29. PYRINAZIN [Concomitant]
     Active Substance: ACETAMINOPHEN
     Indication: ILL-DEFINED DISORDER
     Dosage: .5 GRAM
     Route: 048
     Dates: start: 20110811, end: 20110818
  30. LENADEX [Suspect]
     Active Substance: DEXAMETHASONE ACETATE
     Indication: PLASMA CELL MYELOMA
     Dosage: 24 MILLIGRAM
     Route: 048
     Dates: start: 20110519, end: 20110522
  31. MOHRUS TAPE [Concomitant]
     Active Substance: KETOPROFEN
     Indication: ILL-DEFINED DISORDER
     Dosage: 20 MILLIGRAM
     Route: 062
     Dates: start: 200908, end: 20110615
  32. FENTOS TAPE [Concomitant]
     Active Substance: FENTANYL
     Indication: ILL-DEFINED DISORDER
     Dosage: 1 MILLIGRAM
     Route: 062
     Dates: start: 20110812, end: 20110821
  33. LACTEC [Concomitant]
     Active Substance: CALCIUM CHLORIDE ANHYDROUS\POTASSIUM CHLORIDE\SODIUM CHLORIDE\SODIUM LACTATE
     Dosage: 1000 MILLILITER
     Route: 041
     Dates: start: 20110805, end: 20110817
  34. BAYASPIRIN [Concomitant]
     Active Substance: ASPIRIN
     Indication: PROPHYLAXIS
     Dosage: 100 MILLIGRAM
     Route: 048
     Dates: start: 20110519, end: 20110615
  35. LENADEX [Suspect]
     Active Substance: DEXAMETHASONE ACETATE
     Dosage: 24 MILLIGRAM
     Route: 048
     Dates: start: 20110604, end: 20110607
  36. TAKEPRON [Concomitant]
     Active Substance: LANSOPRAZOLE
     Dosage: 15 MILLIGRAM
     Route: 048
     Dates: start: 20110617, end: 20110818
  37. NEUFAN [Concomitant]
     Active Substance: ALLOPURINOL
     Indication: ILL-DEFINED DISORDER
     Dosage: 100 MILLIGRAM
     Route: 048
     Dates: start: 200908, end: 20110615
  38. MAGMITT [Concomitant]
     Active Substance: MAGNESIUM OXIDE
     Dosage: 1980 MILLIGRAM
     Route: 048
     Dates: start: 20110617, end: 20110818
  39. SOLITA-T NO.1 [Concomitant]
     Indication: ILL-DEFINED DISORDER
     Dosage: 1000 MILLILITER
     Route: 041
     Dates: start: 20110512, end: 20110519
  40. PURSENNID [Concomitant]
     Indication: ILL-DEFINED DISORDER
     Dosage: 24 MILLIGRAM
     Route: 048
     Dates: start: 20110617, end: 20110818
  41. GLYCERIN. [Concomitant]
     Active Substance: GLYCERIN
     Indication: ILL-DEFINED DISORDER
     Dosage: 60 MILLILITER
     Route: 054
     Dates: start: 20110804, end: 20110808

REACTIONS (13)
  - Dehydration [Not Recovered/Not Resolved]
  - Weight decreased [Not Recovered/Not Resolved]
  - General physical health deterioration [Not Recovered/Not Resolved]
  - Melaena [Not Recovered/Not Resolved]
  - Diabetes mellitus [Not Recovered/Not Resolved]
  - Anaemia [Not Recovered/Not Resolved]
  - Restlessness [Not Recovered/Not Resolved]
  - Atrial fibrillation [Recovered/Resolved]
  - Diarrhoea [Recovered/Resolved]
  - Thrombocytopenia [Not Recovered/Not Resolved]
  - Thrombocytopenia [Recovered/Resolved]
  - Hepatic function abnormal [Not Recovered/Not Resolved]
  - Hypoxia [Not Recovered/Not Resolved]

NARRATIVE: CASE EVENT DATE: 20110522
